FAERS Safety Report 8569392-6 (Version None)
Quarter: 2012Q3

REPORT INFORMATION
  Report Type: 
  Country: None (occurrence: None)
  Receive Date: 20120803
  Receipt Date: 20120220
  Transmission Date: 20120928
  Serious: No
  Sender: FDA-Public Use
  Company Number: US-ABBOTT-12P-163-0906291-00

PATIENT
  Sex: Male
  Weight: 88.984 kg

DRUGS (3)
  1. UNKNOWN MEDICATIONS [Concomitant]
  2. NIASPAN [Suspect]
     Indication: BLOOD CHOLESTEROL INCREASED
     Dates: start: 20120101
  3. UNKNOWN MEDICATIONS [Concomitant]
     Indication: PRODUCT USED FOR UNKNOWN INDICATION

REACTIONS (2)
  - SENSATION OF HEAVINESS [None]
  - PAIN IN EXTREMITY [None]
